FAERS Safety Report 4855527-5 (Version None)
Quarter: 2005Q4

REPORT INFORMATION
  Report Type: 
  Country: None (occurrence: None)
  Receive Date: 20051214
  Receipt Date: 20051206
  Transmission Date: 20060501
  Serious: Yes (Other)
  Sender: FDA-Public Use
  Company Number: 143749USA

PATIENT
  Age: 61 Year
  Sex: Female
  Weight: 98.8842 kg

DRUGS (7)
  1. COPAXONE [Suspect]
     Indication: MULTIPLE SCLEROSIS
     Dates: start: 20020903
  2. NEURONTIN [Concomitant]
  3. LIPITOR [Concomitant]
  4. ATENOLOL AND CHLORTHALIDONE [Concomitant]
  5. GLUCOSAMINE [Concomitant]
  6. ZANAFLEX [Concomitant]
  7. CELEBREX [Concomitant]

REACTIONS (6)
  - ECCHYMOSIS [None]
  - INJECTION SITE INFECTION [None]
  - INJECTION SITE IRRITATION [None]
  - SCAB [None]
  - SCAR [None]
  - WRONG TECHNIQUE IN DRUG USAGE PROCESS [None]
